FAERS Safety Report 23457258 (Version 1)
Quarter: 2024Q1

REPORT INFORMATION
  Report Type: Report from Study
  Country: US (occurrence: US)
  Receive Date: 20240130
  Receipt Date: 20240130
  Transmission Date: 20240409
  Serious: Yes (Death)
  Sender: FDA-Public Use
  Company Number: US-BAUSCH-BL-2024-001411

PATIENT
  Age: 65 Year
  Sex: Male

DRUGS (1)
  1. XIFAXAN [Suspect]
     Active Substance: RIFAXIMIN
     Indication: Hepatic encephalopathy
     Dosage: DURATION AT THE TIME OF INITIAL REPORT: 1 MONTH
     Route: 048
     Dates: start: 202312

REACTIONS (5)
  - Cardiovascular disorder [Fatal]
  - End stage renal disease [Fatal]
  - Hepatic cirrhosis [Fatal]
  - Cellulitis [Fatal]
  - Ascites [Fatal]
